FAERS Safety Report 23487950 (Version 2)
Quarter: 2024Q1

REPORT INFORMATION
  Report Type: Spontaneous
  Country: US (occurrence: None)
  Receive Date: 20240206
  Receipt Date: 20240320
  Transmission Date: 20240409
  Serious: Yes (Hospitalization, Other)
  Sender: FDA-Public Use
  Company Number: 2024A023587

PATIENT
  Age: 36 Year
  Sex: Male

DRUGS (1)
  1. TEZEPELUMAB-EKKO [Suspect]
     Active Substance: TEZEPELUMAB-EKKO
     Indication: Asthma
     Route: 058
     Dates: start: 202311, end: 202312

REACTIONS (1)
  - Small cell carcinoma [Unknown]

NARRATIVE: CASE EVENT DATE: 20231231
